FAERS Safety Report 8556551-1 (Version None)
Quarter: 2012Q3

REPORT INFORMATION
  Report Type: 
  Country: None (occurrence: None)
  Receive Date: 20120801
  Receipt Date: 20120730
  Transmission Date: 20120928
  Serious: Yes (Hospitalization)
  Sender: FDA-Public Use
  Company Number: ES-AMGEN-ESPCT2012013789

PATIENT
  Age: 72 Year
  Sex: Female
  Weight: 80 kg

DRUGS (16)
  1. MIXTARD HUMAN 70/30 [Concomitant]
     Indication: DIABETES MELLITUS
     Dosage: UNK UNK, QD
     Route: 048
     Dates: start: 19710615
  2. ACETYLSALICYLIC ACID SRT [Concomitant]
     Indication: CARDIOVASCULAR EVENT PROPHYLAXIS
     Dosage: UNK UNK, QD
     Route: 048
     Dates: start: 19990615
  3. KYTRIL [Concomitant]
     Indication: ANTIEMETIC SUPPORTIVE CARE
     Dosage: 3 MG, Q3WK
     Route: 042
     Dates: start: 20120131
  4. CYCLOPHOSPHAMIDE [Concomitant]
     Dosage: UNK
     Dates: start: 20120131
  5. IDAPTAN [Concomitant]
     Indication: CAROTID BRUIT
     Dosage: 20 MG, QD
     Route: 048
  6. LIBRADIN [Concomitant]
     Indication: HYPERTENSION
     Dates: start: 19961115
  7. DENOSUMAB [Suspect]
     Indication: BREAST CANCER
     Dosage: 120 MG, UNK
     Route: 058
     Dates: start: 20120131
  8. CALCIUM [Concomitant]
     Dosage: 500 MG, UNK
     Route: 048
     Dates: start: 20120131
  9. SIMVASTATIN [Concomitant]
     Indication: DYSLIPIDAEMIA
     Dosage: 20 MG, QD
     Route: 048
     Dates: start: 19960615
  10. OMEPRAZOLE [Concomitant]
     Indication: GASTRITIS PROPHYLAXIS
     Dosage: 20 MG, QD
     Route: 048
  11. LOSARTAN POTASSIUM AND HYDROCHLOROTHIAZIDE [Concomitant]
     Indication: HYPERTENSION
     Dosage: UNK UNK, QD
     Route: 048
     Dates: start: 19960615
  12. DEXAMETHASONE [Concomitant]
     Indication: ANTIEMETIC SUPPORTIVE CARE
     Dosage: 20 MG, Q3WK
     Route: 042
     Dates: start: 20120131
  13. IMURAN [Concomitant]
     Indication: HEPATITIS
     Dosage: UNK UNK, QD
     Route: 048
     Dates: start: 19960615
  14. VITAMIN D [Concomitant]
     Dosage: 400 IU, UNK
     Route: 048
     Dates: start: 20120131
  15. DOCETAXEL [Concomitant]
     Dosage: UNK
     Dates: start: 20120131
  16. PREDNISONE [Concomitant]
     Indication: CHEMOTHERAPY
     Dosage: 50 MG, UNK
     Route: 048
     Dates: start: 20120131

REACTIONS (1)
  - NEUTROPENIA [None]
